FAERS Safety Report 18814349 (Version 2)
Quarter: 2021Q1

REPORT INFORMATION
  Report Type: Spontaneous
  Country: IN (occurrence: IN)
  Receive Date: 20210201
  Receipt Date: 20210303
  Transmission Date: 20210419
  Serious: Yes (Life-Threatening, Other)
  Sender: FDA-Public Use
  Company Number: IN-AMGEN-INDSP2021012258

PATIENT

DRUGS (15)
  1. KYPROLIS [Suspect]
     Active Substance: CARFILZOMIB
     Indication: PLASMA CELL MYELOMA
     Dosage: 20 MILLIGRAM/SQ. METER, ON DAY 1, 2
     Route: 042
  2. KYPROLIS [Suspect]
     Active Substance: CARFILZOMIB
     Dosage: 27 MILLIGRAM/SQ. METER, ON DAY 8, 9, 15, 16 OF CYCLE 1
     Route: 042
  3. DARATUMUMAB [Suspect]
     Active Substance: DARATUMUMAB
     Dosage: 16 MILLIGRAM/KILOGRAM, 2 TIMES/WK, (EVERY 2 WEEKS DAYS 1 AND 15 DURING CYCLES 3?6)
     Route: 042
  4. DIPHENHYDRAMINE. [Concomitant]
     Active Substance: DIPHENHYDRAMINE
     Dosage: UNK
  5. DARATUMUMAB [Suspect]
     Active Substance: DARATUMUMAB
     Dosage: 16 MILLIGRAM/KILOGRAM, QMO (POST 16 WEEKS OF DAMTUMUMAB (08 WEEKLY AND 08 FORTINIGHTLY DOSES)
     Route: 042
  6. DEXAMETHASONE. [Concomitant]
     Active Substance: DEXAMETHASONE
     Dosage: 40 MILLIGRAM, Q2WK
  7. DEXAMETHASONE. [Concomitant]
     Active Substance: DEXAMETHASONE
     Dosage: 40 MILLIGRAM, QWK
  8. ZOLEDRONIC ACID [Concomitant]
     Active Substance: ZOLEDRONIC ACID
     Dosage: UNK
  9. DARATUMUMAB [Suspect]
     Active Substance: DARATUMUMAB
     Dosage: 16 MILLIGRAM/KILOGRAM (EVERY 4 WEEKS POST CYCLE 6)
     Route: 042
  10. DARATUMUMAB [Suspect]
     Active Substance: DARATUMUMAB
     Indication: PLASMA CELL MYELOMA
     Dosage: 16 MILLIGRAM/KILOGRAM, QWK (WEEKLY (DAYS 1, 8, 15, AND 22 DURING CYCLES 1 AND 2)
     Route: 042
  11. DENOSUMAB [Concomitant]
     Active Substance: DENOSUMAB
     Indication: PRODUCT USED FOR UNKNOWN INDICATION
     Dosage: 120 MILLIGRAM, ON DAY I OF EACH CYCLE
     Route: 065
  12. KYPROLIS [Suspect]
     Active Substance: CARFILZOMIB
     Dosage: 70 MILLIGRAM/SQ. METER, ON DAY 1, 8, 15 FROM CYCLE 2 ONWARD IF DEEMED TOLERABLE
     Route: 042
  13. KYPROLIS [Suspect]
     Active Substance: CARFILZOMIB
     Dosage: 56 MILLIGRAM/SQ. METER, Q2WK
     Route: 042
  14. ACETAMINOPHEN. [Concomitant]
     Active Substance: ACETAMINOPHEN
     Dosage: UNK
  15. RANITIDINE. [Concomitant]
     Active Substance: RANITIDINE
     Dosage: 4 MILLIGRAM

REACTIONS (19)
  - Decreased appetite [Unknown]
  - Lymphopenia [Unknown]
  - Fatigue [Unknown]
  - Bronchitis [Unknown]
  - Pyrexia [Unknown]
  - Nausea [Unknown]
  - Thrombocytopenia [Unknown]
  - Infusion related reaction [Recovered/Resolved]
  - Pneumonia [Unknown]
  - Respiratory tract infection [Unknown]
  - Therapy partial responder [Unknown]
  - Vomiting [Unknown]
  - Asthenia [Unknown]
  - Anaemia [Unknown]
  - Neutropenia [Unknown]
  - Diarrhoea [Unknown]
  - Plasma cell myeloma [Unknown]
  - Therapy non-responder [Unknown]
  - Cough [Unknown]
